FAERS Safety Report 10593079 (Version 1)
Quarter: 2014Q4

REPORT INFORMATION
  Report Type: Spontaneous
  Country: US (occurrence: None)
  Receive Date: 20141118
  Receipt Date: 20141118
  Transmission Date: 20150529
  Serious: Yes (Hospitalization)
  Sender: FDA-Public Use
  Company Number: None

PATIENT
  Age: 58 Year
  Sex: Male
  Weight: 90.77 kg

DRUGS (5)
  1. DOXORUBICIN HYDROCHLORIDE. [Suspect]
     Active Substance: DOXORUBICIN HYDROCHLORIDE
  2. RITUXIMAB (MOAB C2B8 ANTI CD20, CHIMERIC) [Suspect]
     Active Substance: RITUXIMAB
  3. VINCRISTINE SULFATE. [Suspect]
     Active Substance: VINCRISTINE SULFATE
  4. CYCLOPHOSPHAMIDE. [Suspect]
     Active Substance: CYCLOPHOSPHAMIDE
  5. ETOPOSIDE (VP-16) [Suspect]
     Active Substance: ETOPOSIDE

REACTIONS (7)
  - Muscle spasms [None]
  - Oedema peripheral [None]
  - Abdominal pain [None]
  - Hypoaesthesia [None]
  - Fluid overload [None]
  - Blood creatinine increased [None]
  - Scrotal oedema [None]

NARRATIVE: CASE EVENT DATE: 20141008
